FAERS Safety Report 13140825 (Version 1)
Quarter: 2017Q1

REPORT INFORMATION
  Report Type: Spontaneous
  Country: US (occurrence: US)
  Receive Date: 20170123
  Receipt Date: 20170123
  Transmission Date: 20170428
  Serious: Yes (Death, Hospitalization, Other)
  Sender: FDA-Public Use
  Company Number: US-VALIDUS PHARMACEUTICALS LLC-US-2012VAL000306

PATIENT
  Age: 20 Year
  Sex: Female

DRUGS (1)
  1. PARLODEL [Suspect]
     Active Substance: BROMOCRIPTINE MESYLATE
     Indication: LACTATION INHIBITION THERAPY
     Dosage: 2.5 MG, BID
     Route: 065

REACTIONS (12)
  - Seizure [Fatal]
  - Hypokalaemia [Fatal]
  - Headache [Fatal]
  - Vomiting [Fatal]
  - Hypertensive crisis [Fatal]
  - Brain oedema [Fatal]
  - Proteinuria [Unknown]
  - Hypoxic-ischaemic encephalopathy [Fatal]
  - Ventricular fibrillation [Fatal]
  - Brain injury [Fatal]
  - Nausea [Fatal]
  - Cardio-respiratory arrest [Fatal]
